FAERS Safety Report 8303384 (Version 2)
Quarter: 2012Q4

REPORT INFORMATION
  Report Type: 
  Country: US (occurrence: US)
  Receive Date: 20111220
  Receipt Date: 20121017
  Transmission Date: 20130627
  Serious: Yes (Other)
  Sender: FDA-Public Use
  Company Number: US-ROCHE-802992

PATIENT
  Age: 15 Year
  Sex: Female
  Weight: 77.18 kg

DRUGS (3)
  1. ACCUTANE [Suspect]
     Indication: ACNE
     Route: 065
     Dates: start: 19990106, end: 199906
  2. ACCUTANE [Suspect]
     Route: 065
     Dates: start: 19991206, end: 200004
  3. ACCUTANE [Suspect]
     Route: 048

REACTIONS (8)
  - Colitis ulcerative [Unknown]
  - Emotional distress [Unknown]
  - Eczema [Recovered/Resolved]
  - Headache [Unknown]
  - Nasal dryness [Unknown]
  - Dry eye [Unknown]
  - Lip dry [Unknown]
  - Chapped lips [Unknown]
